FAERS Safety Report 10905468 (Version 1)
Quarter: 2015Q1

REPORT INFORMATION
  Report Type: Spontaneous
  Country: US (occurrence: None)
  Receive Date: 20150309
  Receipt Date: 20150309
  Transmission Date: 20150721
  Serious: Yes (Other)
  Sender: FDA-Public Use
  Company Number: None

PATIENT
  Age: 24 Year
  Sex: Female
  Weight: 48.99 kg

DRUGS (1)
  1. NUVARING [Suspect]
     Active Substance: ETHINYL ESTRADIOL\ETONOGESTREL
     Indication: CONTRACEPTION
     Route: 067
     Dates: start: 20150220, end: 20150303

REACTIONS (6)
  - Anxiety [None]
  - Quality of life decreased [None]
  - Self-injurious ideation [None]
  - Depression [None]
  - Panic attack [None]
  - Family stress [None]

NARRATIVE: CASE EVENT DATE: 20150301
